FAERS Safety Report 23317381 (Version 1)
Quarter: 2023Q4

REPORT INFORMATION
  Report Type: Spontaneous
  Country: US (occurrence: None)
  Receive Date: 20231219
  Receipt Date: 20231219
  Transmission Date: 20240110
  Serious: No
  Sender: FDA-Public Use
  Company Number: US-ROCHE-3385091

PATIENT
  Sex: Male

DRUGS (2)
  1. HEMLIBRA [Suspect]
     Active Substance: EMICIZUMAB-KXWH
     Indication: Factor VIII deficiency
     Dosage: ONGOING YES
     Route: 058
     Dates: start: 202306
  2. HEMLIBRA [Suspect]
     Active Substance: EMICIZUMAB-KXWH
     Dosage: STRENGTH 105MG/0.7ML
     Route: 058
     Dates: start: 202201

REACTIONS (3)
  - Urinary bladder haemorrhage [Recovering/Resolving]
  - Testicular haemorrhage [Recovering/Resolving]
  - Gingival bleeding [Unknown]

NARRATIVE: CASE EVENT DATE: 20230809
